FAERS Safety Report 8642646 (Version 3)
Quarter: 2014Q1

REPORT INFORMATION
  Report Type: Spontaneous
  Country: US (occurrence: US)
  Receive Date: 20120629
  Receipt Date: 20140212
  Transmission Date: 20141002
  Serious: No
  Sender: FDA-Public Use
  Company Number: US-PFIZER INC-2012154728

PATIENT
  Age: 59 Year
  Sex: Female
  Weight: 49.89 kg

DRUGS (6)
  1. LYRICA [Suspect]
     Indication: NEURALGIA
     Dosage: 100 MG, 3X/DAY
     Dates: start: 2010, end: 201310
  2. CELEXA [Suspect]
     Indication: ANTIDEPRESSANT THERAPY
     Dosage: 20 MG, DAILY
  3. CELEXA [Suspect]
     Dosage: UNK
  4. METHADONE [Concomitant]
     Indication: BACK PAIN
     Dosage: 10 MG, 3X/DAY
  5. ALPRAZOLAM [Concomitant]
     Indication: ANXIETY
     Dosage: UNK
  6. ALPRAZOLAM [Concomitant]
     Indication: PANIC DISORDER

REACTIONS (6)
  - Nausea [Unknown]
  - Pain [Unknown]
  - Nervousness [Unknown]
  - Eructation [Recovering/Resolving]
  - Vomiting [Recovered/Resolved]
  - Drug ineffective [Unknown]
